FAERS Safety Report 16248693 (Version 1)
Quarter: 2019Q2

REPORT INFORMATION
  Report Type: Spontaneous
  Country: SE (occurrence: SE)
  Receive Date: 20190429
  Receipt Date: 20190429
  Transmission Date: 20190711
  Serious: Yes (Hospitalization)
  Sender: FDA-Public Use
  Company Number: SE-JNJFOC-20190429031

PATIENT
  Sex: Female
  Weight: 54 kg

DRUGS (3)
  1. LOPERAMIDE HYDROCHLORIDE. [Suspect]
     Active Substance: LOPERAMIDE HYDROCHLORIDE
     Route: 048
  2. BACLOFEN. [Suspect]
     Active Substance: BACLOFEN
     Indication: PRODUCT USED FOR UNKNOWN INDICATION
     Dosage: AT 6.30, BACLOFEN 50 MG IN TOTAL 300 MG DURING THE NIGHT
     Route: 048
     Dates: start: 20140928, end: 20140929
  3. LOPERAMIDE HYDROCHLORIDE. [Suspect]
     Active Substance: LOPERAMIDE HYDROCHLORIDE
     Indication: PRODUCT USED FOR UNKNOWN INDICATION
     Route: 048
     Dates: start: 20140929, end: 20140929

REACTIONS (9)
  - Increased upper airway secretion [Unknown]
  - Intentional overdose [Unknown]
  - Drug abuse [Unknown]
  - Dyspnoea [Unknown]
  - Pyrexia [Unknown]
  - Agitation [Unknown]
  - Tachycardia [Unknown]
  - Cough [Unknown]
  - Vomiting [Unknown]

NARRATIVE: CASE EVENT DATE: 20140928
